FAERS Safety Report 5252954-1 (Version None)
Quarter: 2007Q1

REPORT INFORMATION
  Report Type: 
  Country: None (occurrence: None)
  Receive Date: 20070301
  Receipt Date: 20070109
  Transmission Date: 20070707
  Serious: Yes (Hospitalization)
  Sender: FDA-Public Use
  Company Number: DE-ROCHE-464324

PATIENT
  Age: 70 Year
  Sex: Female
  Weight: 70 kg

DRUGS (2)
  1. XELODA [Suspect]
     Dosage: DAYS 1-14, REPEATED ON DAY 21
     Route: 065
     Dates: start: 20060509, end: 20060823
  2. TAXOTERE [Suspect]
     Dosage: ON DAYS 1 + 8, REPEATED ON DAY 21
     Route: 065
     Dates: start: 20060509, end: 20060823

REACTIONS (2)
  - NAIL DISORDER [None]
  - PARALYSIS [None]
